FAERS Safety Report 7115783-X (Version None)
Quarter: 2010Q4

REPORT INFORMATION
  Report Type: 
  Country: None (occurrence: None)
  Receive Date: 20101122
  Receipt Date: 20100524
  Transmission Date: 20110411
  Serious: Yes (Hospitalization, Other)
  Sender: FDA-Public Use
  Company Number: US-BAYER-201020298NA

PATIENT
  Age: 31 Year
  Sex: Female
  Weight: 67 kg

DRUGS (9)
  1. YAZ [Suspect]
     Indication: ORAL CONTRACEPTION
     Route: 048
     Dates: start: 20070424, end: 20080815
  2. ZITHROMAX [Concomitant]
  3. PERCOCET-5 [Concomitant]
  4. ALEVE (CAPLET) [Concomitant]
  5. ZITHROMAX [Concomitant]
  6. LOVENOX [Concomitant]
  7. TYLENOL (CAPLET) [Concomitant]
  8. MAGNESIUM [Concomitant]
     Route: 048
  9. ASPIRIN [Concomitant]

REACTIONS (6)
  - ARRHYTHMIA [None]
  - CHEST PAIN [None]
  - DEEP VEIN THROMBOSIS [None]
  - PAIN IN EXTREMITY [None]
  - PULMONARY EMBOLISM [None]
  - PULMONARY INFARCTION [None]
